FAERS Safety Report 16222107 (Version 8)
Quarter: 2019Q3

REPORT INFORMATION
  Report Type: Spontaneous
  Country: IT (occurrence: IT)
  Receive Date: 20190422
  Receipt Date: 20190903
  Transmission Date: 20191004
  Serious: Yes (Death, Hospitalization, Other)
  Sender: FDA-Public Use
  Company Number: IT-SA-2019SA106048

PATIENT
  Age: 46 Year
  Sex: Female

DRUGS (3)
  1. LEMTRADA [Suspect]
     Active Substance: ALEMTUZUMAB
     Indication: MULTIPLE SCLEROSIS
     Dosage: UNK, UNK
     Route: 041
     Dates: start: 201705
  2. LEMTRADA [Suspect]
     Active Substance: ALEMTUZUMAB
     Dosage: UNK
     Route: 041
     Dates: start: 201805
  3. CORTISONE [Suspect]
     Active Substance: CORTISONE
     Dosage: UNK UNK, UNK
     Route: 041

REACTIONS (21)
  - Pulmonary oedema [Unknown]
  - Death [Fatal]
  - Generalised oedema [Unknown]
  - Proteinuria [Unknown]
  - Multiple sclerosis [Unknown]
  - C-reactive protein increased [Unknown]
  - Fatigue [Unknown]
  - Kidney infection [Unknown]
  - Parvovirus B19 infection [Unknown]
  - Pyrexia [Unknown]
  - Vomiting [Unknown]
  - Herpes zoster [Recovering/Resolving]
  - Haemolytic uraemic syndrome [Unknown]
  - Sepsis [Unknown]
  - Candiduria [Unknown]
  - Haemolytic anaemia [Not Recovered/Not Resolved]
  - Thrombocytopenia [Unknown]
  - Dyspnoea [Unknown]
  - Klebsiella infection [Unknown]
  - Dysuria [Unknown]
  - Abdominal pain [Unknown]

NARRATIVE: CASE EVENT DATE: 201904
